FAERS Safety Report 4506651-8 (Version None)
Quarter: 2004Q4

REPORT INFORMATION
  Report Type: 
  Country: None (occurrence: None)
  Receive Date: 20041117
  Receipt Date: 20041103
  Transmission Date: 20050328
  Serious: Yes (Other)
  Sender: FDA-Public Use
  Company Number: 200415326BCC

PATIENT
  Age: 67 Year
  Sex: Female
  Weight: 72.5755 kg

DRUGS (7)
  1. ALEVE [Suspect]
     Indication: ARTHRALGIA
     Dosage: 165 MG, ONCE ORAL
     Route: 048
     Dates: start: 20041103
  2. AVALIDE [Concomitant]
  3. TENORMIN [Concomitant]
  4. ACCUPRIL [Concomitant]
  5. ZOCOR [Concomitant]
  6. ZETIA [Concomitant]
  7. VICODIN [Concomitant]

REACTIONS (3)
  - BLOOD PRESSURE INCREASED [None]
  - DIZZINESS [None]
  - FEELING ABNORMAL [None]
